FAERS Safety Report 6642525-4 (Version None)
Quarter: 2010Q1

REPORT INFORMATION
  Report Type: 
  Country: None (occurrence: None)
  Receive Date: 20100319
  Receipt Date: 20100309
  Transmission Date: 20100710
  Serious: Yes (Hospitalization)
  Sender: FDA-Public Use
  Company Number: US-ABBOTT-10P-163-0627940-00

PATIENT
  Sex: Female
  Weight: 67.192 kg

DRUGS (17)
  1. HUMIRA [Suspect]
     Indication: COLITIS ULCERATIVE
     Route: 058
     Dates: start: 20090201
  2. HUMIRA [Suspect]
     Indication: CROHN'S DISEASE
  3. HUMIRA [Suspect]
  4. PREDNISONE [Concomitant]
     Indication: DRUG USE FOR UNKNOWN INDICATION
  5. PREVACID [Concomitant]
     Indication: DRUG USE FOR UNKNOWN INDICATION
  6. CYMBALTA [Concomitant]
     Indication: DRUG USE FOR UNKNOWN INDICATION
  7. FLONASE [Concomitant]
     Indication: DRUG USE FOR UNKNOWN INDICATION
  8. METOPROLOL TARTRATE [Concomitant]
     Indication: DRUG USE FOR UNKNOWN INDICATION
  9. FOLIC ACID [Concomitant]
     Indication: DRUG USE FOR UNKNOWN INDICATION
  10. HALCION [Concomitant]
     Indication: DRUG USE FOR UNKNOWN INDICATION
  11. KLONOPIN [Concomitant]
     Indication: DRUG USE FOR UNKNOWN INDICATION
  12. FOSAMAX [Concomitant]
     Indication: DRUG USE FOR UNKNOWN INDICATION
  13. POTASSIUM [Concomitant]
     Indication: DRUG USE FOR UNKNOWN INDICATION
  14. CLONAZEPAM [Concomitant]
     Indication: DRUG USE FOR UNKNOWN INDICATION
  15. VITAMIN B-12 [Concomitant]
     Indication: DRUG USE FOR UNKNOWN INDICATION
  16. COMPAZINE [Concomitant]
     Indication: DRUG USE FOR UNKNOWN INDICATION
  17. COLAZOL [Concomitant]
     Indication: DRUG USE FOR UNKNOWN INDICATION

REACTIONS (27)
  - ANTINUCLEAR ANTIBODY POSITIVE [None]
  - BUTTERFLY RASH [None]
  - CANDIDIASIS [None]
  - CARDIAC DISORDER [None]
  - CHEST PAIN [None]
  - CROHN'S DISEASE [None]
  - DYSPNOEA [None]
  - FATIGUE [None]
  - HEPATIC LESION [None]
  - HISTONE ANTIBODY POSITIVE [None]
  - HOSPITALISATION [None]
  - LABORATORY TEST ABNORMAL [None]
  - MOBILITY DECREASED [None]
  - MUSCLE SPASMS [None]
  - OEDEMA PERIPHERAL [None]
  - OESOPHAGEAL CANDIDIASIS [None]
  - PALPITATIONS [None]
  - PANCREATIC DUCT DILATATION [None]
  - PYREXIA [None]
  - RASH [None]
  - RASH ERYTHEMATOUS [None]
  - SKIN DISCOLOURATION [None]
  - TACHYCARDIA [None]
  - TRICUSPID VALVE DISEASE [None]
  - UTERINE MASS [None]
  - VISION BLURRED [None]
  - WHITE BLOOD CELL COUNT INCREASED [None]
